FAERS Safety Report 10250035 (Version 1)
Quarter: 2014Q2

REPORT INFORMATION
  Report Type: Spontaneous
  Country: SE (occurrence: SE)
  Receive Date: 20140620
  Receipt Date: 20140620
  Transmission Date: 20141212
  Serious: Yes (Hospitalization)
  Sender: FDA-Public Use
  Company Number: SE-PFIZER INC-2014167876

PATIENT
  Age: 69 Year
  Sex: Female

DRUGS (18)
  1. CHAMPIX [Suspect]
     Indication: SMOKING CESSATION THERAPY
     Dosage: 0.5 MG
     Dates: start: 20140205, end: 201402
  2. CHAMPIX [Suspect]
     Dosage: 0.5 MG, 2X/DAY
     Dates: start: 201402, end: 20140219
  3. KALCIPOS-D FORTE [Concomitant]
  4. KETOKONAZOL ALTERNOVA [Concomitant]
  5. DAKTACORT [Concomitant]
  6. ROZEX [Concomitant]
  7. ALENDRONIC ACID [Concomitant]
  8. DESONIX [Concomitant]
  9. SERETIDE DISKUS [Concomitant]
  10. SPIRIVA [Concomitant]
  11. ACETYLCYSTEINE [Concomitant]
  12. OMEPRAZOLE [Concomitant]
  13. MINIDERM [Concomitant]
  14. STILNOCT [Concomitant]
  15. VENTOLINE DISKUS [Concomitant]
  16. CETIRIZINE [Concomitant]
  17. LIVOSTIN [Concomitant]
  18. ALVEDON [Concomitant]

REACTIONS (1)
  - Stress cardiomyopathy [Recovered/Resolved]
